FAERS Safety Report 4926873-1 (Version None)
Quarter: 2006Q1

REPORT INFORMATION
  Report Type: 
  Country: None (occurrence: None)
  Receive Date: 20060228
  Receipt Date: 20050708
  Transmission Date: 20060701
  Serious: No
  Sender: FDA-Public Use
  Company Number: US-GLAXOSMITHKLINE-A0565542A

PATIENT
  Age: 68 Year
  Sex: Female
  Weight: 60.5 kg

DRUGS (3)
  1. LAMICTAL [Suspect]
     Indication: BIPOLAR DISORDER
     Dosage: 100MG PER DAY
     Route: 048
  2. FLUPHENAZINE [Concomitant]
  3. SEROQUEL [Concomitant]

REACTIONS (3)
  - BREAST ENGORGEMENT [None]
  - COUGH [None]
  - INCREASED APPETITE [None]
